FAERS Safety Report 6225162-5 (Version None)
Quarter: 2009Q2

REPORT INFORMATION
  Report Type: 
  Country: None (occurrence: None)
  Receive Date: 20090612
  Receipt Date: 20090408
  Transmission Date: 20091009
  Serious: No
  Sender: FDA-Public Use
  Company Number: US-ABBOTT-09P-163-0567478-00

PATIENT
  Sex: Female

DRUGS (6)
  1. HUMIRA [Suspect]
     Indication: PSORIASIS
     Route: 058
     Dates: start: 20090131, end: 20090131
  2. CLOBEX [Concomitant]
     Indication: PSORIASIS
     Dosage: APPLY TO AFFECTED AREAS AS DIRECTED
     Route: 061
  3. DOVINEX SOLUTION [Concomitant]
     Indication: PSORIASIS
     Dosage: APPLY AS DIRECTED TO SCALP
     Route: 061
  4. TRIAMCIMOLONE [Concomitant]
     Indication: PSORIASIS
     Dosage: 0.025% CREAM
     Route: 061
  5. DOVINEX CREAM [Concomitant]
     Indication: PSORIASIS
     Dosage: APPLY TO AFFECTED AREAS
     Route: 061
  6. CLOBEX SPRAY [Concomitant]
     Indication: PSORIASIS
     Dosage: APPLY AS DIRECTED
     Route: 061

REACTIONS (1)
  - INJECTION SITE ERYTHEMA [None]
